FAERS Safety Report 4332507-X (Version None)
Quarter: 2004Q2

REPORT INFORMATION
  Report Type: 
  Country: None (occurrence: None)
  Receive Date: 20040401
  Receipt Date: 20040319
  Transmission Date: 20050107
  Serious: Yes (Life-Threatening)
  Sender: FDA-Public Use
  Company Number: 2004AP01749

PATIENT
  Age: 74 Year
  Sex: Female

DRUGS (7)
  1. IRESSA [Suspect]
     Indication: LUNG ADENOCARCINOMA
     Dosage: 250 MG DAILY PO
     Route: 048
  2. IRESSA [Suspect]
     Indication: METASTASES TO BONE
     Dosage: 250 MG DAILY PO
     Route: 048
  3. IRESSA [Suspect]
     Indication: METASTASES TO CENTRAL NERVOUS SYSTEM
     Dosage: 250 MG DAILY PO
     Route: 048
  4. JUZENTAIHOTO [Concomitant]
  5. CEPHARANTHIN [Concomitant]
  6. NEUROTROPIN [Concomitant]
  7. PENTAGIN [Concomitant]

REACTIONS (3)
  - DRY SKIN [None]
  - INTERSTITIAL LUNG DISEASE [None]
  - PLEURAL EFFUSION [None]
